FAERS Safety Report 9250744 (Version 1)
Quarter: 2013Q1

REPORT INFORMATION
  Report Type: Spontaneous
  Country: US (occurrence: None)
  Receive Date: 20130305
  Receipt Date: 20130305
  Transmission Date: 20140127
  Serious: Yes (Hospitalization)
  Sender: FDA-Public Use
  Company Number: 163-21880-12071150

PATIENT
  Age: 55 Year
  Sex: Male

DRUGS (6)
  1. REVLIMID [Suspect]
     Indication: PLASMA CELL MYELOMA
     Dosage: 25 MG, 21 IN 21 D, PO
     Route: 048
     Dates: start: 20120603
  2. LISINOPRIL (LISINOPRIL) (UNKNOWN) [Concomitant]
     Indication: HYPERTENSION
     Dosage: 20 MG, 1 IN 1 D, UNK
  3. DILTIAZEM HCL (DILTIAZEM HYDROCHLORIDE) (UNKNOWN) [Concomitant]
  4. COUMADIN  (WARFARIN SODIUM) (UNKNOWN) [Concomitant]
     Indication: ATRIAL FIBRILLATION
     Dosage: 2.5 MG, 1 IN 1 D, UNK
  5. CYTOXAN (CYCLOPHOSPHAMIDE) (UNKNOWN) [Concomitant]
     Indication: PLASMA CELL MYELOMA
     Dosage: 50 MG, 1 IN 1 D, UNK
  6. CARDIZEM (DILTIAZEM HYDROCHLORIDE) (UNKNOWN) [Concomitant]
     Indication: ATRIAL FIBRILLATION
     Dosage: 240 MG, 1 IN 1 D, UNK

REACTIONS (1)
  - Ecthyma [None]
